FAERS Safety Report 4613574-2 (Version None)
Quarter: 2005Q1

REPORT INFORMATION
  Report Type: 
  Country: None (occurrence: None)
  Receive Date: 20050315
  Receipt Date: 20050301
  Transmission Date: 20050727
  Serious: Yes (Hospitalization)
  Sender: FDA-Public Use
  Company Number: F01200500356

PATIENT
  Age: 75 Year
  Sex: Male

DRUGS (3)
  1. (OXALIPLATIN) - SOLUTION - 100 MG/ M2 [Suspect]
     Indication: COLORECTAL CANCER METASTATIC
     Dosage: 200 MG Q2W; INTRAVENOUS NOS
     Route: 042
     Dates: start: 20050124, end: 20050124
  2. (FLUOROURACIL) - SOLUTION - 3000 MG/M2 [Suspect]
     Dosage: 6000 MG Q2W; INTRAVENOUS NOS
     Route: 042
     Dates: start: 20050124, end: 20050124
  3. (LEUCOVORIN) - SOLUTION - 200 MG/M2 [Suspect]
     Dosage: 200 MG/M2; INTRAVENOUS NOS
     Route: 042
     Dates: start: 20050124, end: 20050124

REACTIONS (3)
  - CARDIAC FAILURE [None]
  - GENERAL PHYSICAL HEALTH DETERIORATION [None]
  - LUNG INFECTION [None]
